FAERS Safety Report 19946099 (Version 3)
Quarter: 2021Q4

REPORT INFORMATION
  Report Type: Report from Study
  Country: CA (occurrence: CA)
  Receive Date: 20211012
  Receipt Date: 20211115
  Transmission Date: 20220303
  Serious: Yes (Other)
  Sender: FDA-Public Use
  Company Number: CA-ABBVIE-21K-028-3869128-00

PATIENT
  Sex: Female

DRUGS (2)
  1. RINVOQ [Suspect]
     Active Substance: UPADACITINIB
     Indication: Rheumatoid arthritis
     Route: 048
     Dates: start: 20210116, end: 2021
  2. RINVOQ [Suspect]
     Active Substance: UPADACITINIB
     Route: 048
     Dates: start: 2021, end: 2021

REACTIONS (33)
  - Bone cancer [Unknown]
  - Furuncle [Recovered/Resolved]
  - Furuncle [Not Recovered/Not Resolved]
  - Fungal infection [Unknown]
  - Amnesia [Unknown]
  - Hypertension [Not Recovered/Not Resolved]
  - Vitreous floaters [Unknown]
  - Anal hypoaesthesia [Unknown]
  - Hypoaesthesia [Unknown]
  - Peripheral swelling [Unknown]
  - Dizziness [Unknown]
  - Constipation [Unknown]
  - Rectal haemorrhage [Unknown]
  - Haemorrhoids [Unknown]
  - Anxiety [Unknown]
  - Haemorrhage [Unknown]
  - Ulcer [Unknown]
  - Memory impairment [Unknown]
  - Pain [Unknown]
  - Hypoaesthesia [Unknown]
  - Coccydynia [Unknown]
  - Proctalgia [Unknown]
  - Pain in extremity [Unknown]
  - Arthralgia [Unknown]
  - Wound [Unknown]
  - Weight increased [Unknown]
  - Headache [Unknown]
  - Oral herpes [Unknown]
  - Drug ineffective [Unknown]
  - Nasopharyngitis [Recovering/Resolving]
  - Oropharyngeal pain [Recovering/Resolving]
  - Arthropathy [Unknown]
  - Unevaluable event [Unknown]

NARRATIVE: CASE EVENT DATE: 20210101
